FAERS Safety Report 25477536 (Version 1)
Quarter: 2025Q2

REPORT INFORMATION
  Report Type: Spontaneous
  Country: US (occurrence: US)
  Receive Date: 20250625
  Receipt Date: 20250625
  Transmission Date: 20250716
  Serious: No
  Sender: ELI LILLY AND COMPANY
  Company Number: US-ELI_LILLY_AND_COMPANY-US202506019729

PATIENT
  Age: 47 Year
  Sex: Female

DRUGS (2)
  1. TALTZ [Suspect]
     Active Substance: IXEKIZUMAB
     Indication: Psoriatic arthropathy
     Route: 058
  2. TALTZ [Suspect]
     Active Substance: IXEKIZUMAB
     Route: 058

REACTIONS (6)
  - Diarrhoea [Unknown]
  - Dyspnoea [Unknown]
  - Cough [Unknown]
  - Inappropriate schedule of product administration [Unknown]
  - Overdose [Unknown]
  - Nausea [Unknown]

NARRATIVE: CASE EVENT DATE: 20250501
